FAERS Safety Report 6573888-6 (Version None)
Quarter: 2010Q1

REPORT INFORMATION
  Report Type: 
  Country: None (occurrence: None)
  Receive Date: 20100208
  Receipt Date: 20100201
  Transmission Date: 20100710
  Serious: Yes (Life-Threatening, Hospitalization)
  Sender: FDA-Public Use
  Company Number: DE-NAPPMUNDI-DEU-2009-0005513

PATIENT
  Age: 64 Year
  Sex: Male
  Weight: 100 kg

DRUGS (8)
  1. MORPHINE SULFATE INJECTABLE [Suspect]
     Indication: PAIN
     Dosage: UNK
     Route: 008
     Dates: start: 20070101, end: 20090422
  2. PROTHAZIN [Interacting]
     Indication: PROPHYLAXIS OF NAUSEA AND VOMITING
     Dosage: 25 MG, DAILY
  3. ACETYLSALICYLIC ACID [Concomitant]
  4. AMLODIPINE [Concomitant]
  5. ISDN [Concomitant]
  6. LISINOPRIL [Concomitant]
  7. METOPROLOL TARTRATE [Concomitant]
  8. SIMVASTATIN [Concomitant]

REACTIONS (3)
  - ACUTE RESPIRATORY FAILURE [None]
  - DRUG TOXICITY [None]
  - PNEUMONIA ASPIRATION [None]
